FAERS Safety Report 5636690-5 (Version None)
Quarter: 2008Q1

REPORT INFORMATION
  Report Type: 
  Country: None (occurrence: None)
  Receive Date: 20080225
  Receipt Date: 20080221
  Transmission Date: 20080703
  Serious: Yes (Death)
  Sender: FDA-Public Use
  Company Number: JP-ASTRAZENECA-2008AP01253

PATIENT
  Age: 29 Year
  Sex: Male

DRUGS (2)
  1. XYLOCAINE VISCOUS [Suspect]
     Indication: LOCAL ANAESTHESIA
     Route: 048
     Dates: start: 20080220, end: 20080220
  2. PSYCHOTROPIC AGENTS [Concomitant]
     Dosage: DOSE UNKNOWN
     Route: 048

REACTIONS (2)
  - CARDIAC ARREST [None]
  - CONVULSION [None]
